FAERS Safety Report 22194392 (Version 1)
Quarter: 2023Q2

REPORT INFORMATION
  Report Type: Report from Study
  Country: EC (occurrence: EC)
  Receive Date: 20230411
  Receipt Date: 20230411
  Transmission Date: 20230722
  Serious: Yes (Other)
  Sender: FDA-Public Use
  Company Number: EC-JNJFOC-20230412916

PATIENT
  Age: 29 Year
  Sex: Male

DRUGS (8)
  1. ESKETAMINE [Suspect]
     Active Substance: ESKETAMINE
     Indication: Depression
     Dates: start: 20230302, end: 20230302
  2. ESKETAMINE [Suspect]
     Active Substance: ESKETAMINE
     Dates: start: 20230307, end: 20230307
  3. ESKETAMINE [Suspect]
     Active Substance: ESKETAMINE
     Dates: start: 20230309, end: 20230309
  4. ESKETAMINE [Suspect]
     Active Substance: ESKETAMINE
     Dates: start: 20230314, end: 20230314
  5. ESKETAMINE [Suspect]
     Active Substance: ESKETAMINE
     Dates: start: 20230316, end: 20230316
  6. ESKETAMINE [Suspect]
     Active Substance: ESKETAMINE
     Dates: start: 20230321, end: 20230321
  7. ESKETAMINE [Suspect]
     Active Substance: ESKETAMINE
     Dates: start: 20230323, end: 20230323
  8. ESKETAMINE [Suspect]
     Active Substance: ESKETAMINE
     Dates: start: 20230328, end: 20230328

REACTIONS (2)
  - Hallucination [Recovered/Resolved]
  - Dizziness [Recovered/Resolved]

NARRATIVE: CASE EVENT DATE: 20230302
